FAERS Safety Report 25855383 (Version 1)
Quarter: 2025Q3

REPORT INFORMATION
  Report Type: Spontaneous
  Country: EU (occurrence: EU)
  Receive Date: 20250927
  Receipt Date: 20250927
  Transmission Date: 20251020
  Serious: Yes (Other)
  Sender: AMGEN
  Company Number: EU-AMGEN-CZESP2025188146

PATIENT
  Age: 61 Year
  Sex: Female

DRUGS (6)
  1. XGEVA [Suspect]
     Active Substance: DENOSUMAB
     Indication: Product used for unknown indication
     Route: 065
     Dates: start: 201806, end: 201902
  2. XGEVA [Suspect]
     Active Substance: DENOSUMAB
     Route: 065
     Dates: start: 202203
  3. AROMASIN [Concomitant]
     Active Substance: EXEMESTANE
     Dates: start: 201806, end: 202002
  4. NAVELBINE [Concomitant]
     Active Substance: VINORELBINE TARTRATE
     Dates: start: 202109, end: 202204
  5. BONEFOS [Concomitant]
     Active Substance: CLODRONATE DISODIUM
     Dates: start: 202102, end: 202203
  6. ENHERTU [Concomitant]
     Active Substance: FAM-TRASTUZUMAB DERUXTECAN-NXKI
     Dates: start: 202302, end: 202410

REACTIONS (2)
  - Metastases to lung [Unknown]
  - Drug intolerance [Unknown]
